FAERS Safety Report 4619701-5 (Version None)
Quarter: 2005Q1

REPORT INFORMATION
  Report Type: 
  Country: None (occurrence: None)
  Receive Date: 20050317
  Receipt Date: 20050317
  Transmission Date: 20050727
  Serious: Yes (Hospitalization)
  Sender: FDA-Public Use
  Company Number: None

PATIENT
  Age: 80 Year
  Sex: Male

DRUGS (19)
  1. PLAVIX [Suspect]
     Indication: CORONARY ANGIOPLASTY
     Dosage: 75MG/DAY PO
     Route: 048
     Dates: start: 20041029, end: 20050202
  2. HEPARIN [Suspect]
     Indication: CORONARY ANGIOPLASTY
     Dosage: 1050 UNITS/H
     Dates: start: 20041029, end: 20041031
  3. ACETAMINOPHEN [Concomitant]
  4. ASPIRIN [Concomitant]
  5. BUPROPION HCL [Concomitant]
  6. CARVEDILOL [Concomitant]
  7. CLOPIDOGREL BISULFATE [Concomitant]
  8. ENALAPRIL MALEATE [Concomitant]
  9. FOLIC ACID [Concomitant]
  10. FUROSEMIDE [Concomitant]
  11. GUAIFENESIN [Concomitant]
  12. HEPARIN/SDOIUM CHLORIDE [Concomitant]
  13. IPRATROPIUM BROMIDE [Concomitant]
  14. MEGNESIUM HYDROXIDE [Concomitant]
  15. MIRTAZAPINE [Concomitant]
  16. MULTI-VITAMIN [Concomitant]
  17. NITROGYCERIN [Concomitant]
  18. OMEPRAZOLE [Concomitant]
  19. PREDNISONE [Concomitant]

REACTIONS (2)
  - HAEMATOCRIT DECREASED [None]
  - POST PROCEDURAL HAEMATOMA [None]
